FAERS Safety Report 9393774 (Version 1)
Quarter: 2013Q3

REPORT INFORMATION
  Report Type: Spontaneous
  Country: US (occurrence: US)
  Receive Date: 20130710
  Receipt Date: 20130710
  Transmission Date: 20140515
  Serious: Yes (Other)
  Sender: FDA-Public Use
  Company Number: US-TEVA-417943USA

PATIENT
  Sex: Female

DRUGS (1)
  1. PARAGARD 380A [Suspect]
     Indication: CONTRACEPTION

REACTIONS (5)
  - Pregnancy with contraceptive device [Unknown]
  - Drug ineffective [Unknown]
  - Muscle spasms [Unknown]
  - Metrorrhagia [Unknown]
  - Cyst [Unknown]
